FAERS Safety Report 23847707 (Version 2)
Quarter: 2024Q2

REPORT INFORMATION
  Report Type: Report from Study
  Country: US (occurrence: US)
  Receive Date: 20240513
  Receipt Date: 20240612
  Transmission Date: 20240716
  Serious: Yes (Hospitalization)
  Sender: FDA-Public Use
  Company Number: US-GILEAD-2024-0672464

PATIENT
  Age: 35 Year
  Sex: Female

DRUGS (17)
  1. AZTREONAM LYSINE [Suspect]
     Active Substance: AZTREONAM LYSINE
     Indication: Cystic fibrosis
     Dosage: 1 VIAL (75 MG) VIA ALTERA NEBULIZER THREE TIMES A DAY, EVERY OTHER MONTH
     Route: 055
  2. TRIKAFTA [Concomitant]
     Active Substance: ELEXACAFTOR\IVACAFTOR\TEZACAFTOR
  3. ALBUTEROL SULFATE [Concomitant]
     Active Substance: ALBUTEROL SULFATE
  4. NYSTATIN [Concomitant]
     Active Substance: NYSTATIN
  5. LIDOCAINE AND PRILOCAINE [Concomitant]
     Active Substance: LIDOCAINE\PRILOCAINE
  6. PANTOPRAZOLE SODIUM [Concomitant]
     Active Substance: PANTOPRAZOLE SODIUM
  7. ALBUTEROL SULFATE [Concomitant]
     Active Substance: ALBUTEROL SULFATE
  8. SENNA [Concomitant]
     Active Substance: SENNA LEAF\SENNOSIDES\SENNOSIDES A AND B
  9. FERROUS SULFATE [Concomitant]
     Active Substance: FERROUS SULFATE
  10. URSODIOL [Concomitant]
     Active Substance: URSODIOL
  11. RETINOL [Concomitant]
     Active Substance: RETINOL
  12. AMITRIPTYLINE HYDROCHLORIDE [Concomitant]
     Active Substance: AMITRIPTYLINE HYDROCHLORIDE
  13. DULOXETINE HYDROCHLORIDE [Concomitant]
     Active Substance: DULOXETINE HYDROCHLORIDE
  14. VITAMIN D2 [Concomitant]
     Active Substance: ERGOCALCIFEROL
  15. PULMOZYME [Concomitant]
     Active Substance: DORNASE ALFA
  16. METOPROLOL TARTRATE [Concomitant]
     Active Substance: METOPROLOL TARTRATE
  17. MVW COMPLETE FORMULATION PEDIATRIC [Concomitant]

REACTIONS (1)
  - Gastrointestinal disorder [Recovered/Resolved]

NARRATIVE: CASE EVENT DATE: 20240528
